FAERS Safety Report 7598607-6 (Version None)
Quarter: 2011Q3

REPORT INFORMATION
  Report Type: 
  Country: None (occurrence: None)
  Receive Date: 20110710
  Receipt Date: 20110706
  Transmission Date: 20111222
  Serious: Yes (Other)
  Sender: FDA-Public Use
  Company Number: PL-AMGEN-POLSP2011029561

PATIENT
  Sex: Female

DRUGS (4)
  1. NEULASTA [Suspect]
     Indication: CHEMOTHERAPY
     Dosage: 6 MG, QCYCLE
     Route: 058
     Dates: start: 20110525, end: 20110525
  2. EPIRUBICIN [Concomitant]
     Indication: NEOPLASM MALIGNANT
     Dosage: UNK UNK, Q3WK
     Route: 042
     Dates: start: 20110217, end: 20110505
  3. CYCLOPHOSPHAMIDE [Concomitant]
     Indication: NEOPLASM MALIGNANT
     Dosage: UNK UNK, Q3WK
     Route: 042
     Dates: start: 20110217, end: 20110505
  4. FLUOROURACIL [Concomitant]
     Indication: NEOPLASM MALIGNANT
     Dosage: UNK UNK, Q3WK
     Route: 042
     Dates: start: 20110217, end: 20110505

REACTIONS (1)
  - SKIN MASS [None]
